FAERS Safety Report 13923565 (Version 1)
Quarter: 2017Q3

REPORT INFORMATION
  Report Type: Report from Study
  Country: DE (occurrence: DE)
  Receive Date: 20170831
  Receipt Date: 20170831
  Transmission Date: 20171127
  Serious: Yes (Hospitalization, Other)
  Sender: FDA-Public Use
  Company Number: DE-BIOGEN-2017BI00429731

PATIENT
  Sex: Female
  Weight: 52 kg

DRUGS (6)
  1. PANTOZOL (ERYTHROMYCIN\SULFISOXAZOLE) [Concomitant]
     Active Substance: ERYTHROMYCIN\SULFISOXAZOLE
     Indication: PRODUCT USED FOR UNKNOWN INDICATION
     Dosage: 40
     Route: 065
  2. MICTONORM [Concomitant]
     Active Substance: PROPIVERINE HYDROCHLORIDE
     Indication: PRODUCT USED FOR UNKNOWN INDICATION
     Dosage: 40
     Route: 065
  3. SIMVASTATIN. [Concomitant]
     Active Substance: SIMVASTATIN
     Indication: PRODUCT USED FOR UNKNOWN INDICATION
     Dosage: 40
     Route: 065
  4. VIGANTOLETTEN [Concomitant]
     Active Substance: CHOLECALCIFEROL
     Dosage: 1000
     Route: 065
  5. TYSABRI [Suspect]
     Active Substance: NATALIZUMAB
     Indication: MULTIPLE SCLEROSIS
     Route: 042
     Dates: start: 20090806
  6. VIGANTOLETTEN [Concomitant]
     Active Substance: CHOLECALCIFEROL
     Indication: PRODUCT USED FOR UNKNOWN INDICATION
     Route: 065

REACTIONS (17)
  - Colitis ulcerative [Unknown]
  - Impaired healing [Unknown]
  - Urinary tract infection [Unknown]
  - Micturition disorder [Unknown]
  - Tinea versicolour [Unknown]
  - Gait disturbance [Unknown]
  - Urinary retention [Unknown]
  - Mobility decreased [Unknown]
  - Peripheral arterial occlusive disease [Recovered/Resolved]
  - Constipation [Unknown]
  - Sleep disorder [Unknown]
  - Pain in extremity [Unknown]
  - Dry mouth [Unknown]
  - Mitral valve incompetence [Unknown]
  - Tricuspid valve incompetence [Unknown]
  - Clostridium test positive [Unknown]
  - Incontinence [Unknown]

NARRATIVE: CASE EVENT DATE: 20170211
